FAERS Safety Report 6181207-2 (Version None)
Quarter: 2009Q2

REPORT INFORMATION
  Report Type: 
  Country: None (occurrence: None)
  Receive Date: 20090504
  Receipt Date: 20090424
  Transmission Date: 20091009
  Serious: Yes (Hospitalization)
  Sender: FDA-Public Use
  Company Number: DSA_33568_2009

PATIENT
  Age: 71 Year
  Sex: Female

DRUGS (9)
  1. ENALAPRIL MALEATE [Suspect]
     Indication: HYPERTENSION
     Dosage: 5 MG QD, ORAL (DF ORAL)
     Route: 048
     Dates: start: 20000101, end: 20090107
  2. ENALAPRIL MALEATE [Suspect]
     Indication: HYPERTENSION
     Dosage: 5 MG QD, ORAL (DF ORAL)
     Route: 048
     Dates: start: 20090113
  3. FUROSEMIDE [Suspect]
     Indication: HYPERTENSION
     Dosage: 40 MG, QD, ORAL
     Route: 048
     Dates: end: 20090107
  4. METHYLDOPA [Suspect]
     Indication: HYPERTENSION
     Dosage: 250 MG BID, ORAL
     Route: 048
     Dates: start: 20000101, end: 20090107
  5. MICARDIS [Suspect]
     Indication: HYPERTENSION
     Dosage: 80 MG, QD, ORAL
     Route: 048
     Dates: start: 19980101, end: 20090107
  6. ASPIRIN [Concomitant]
  7. DIGITOXIN TAB [Concomitant]
  8. ACTRAPID [Concomitant]
  9. LEVOTHYROXINE SODIUM [Concomitant]

REACTIONS (8)
  - ASTHENIA [None]
  - BLOOD CREATININE INCREASED [None]
  - DIARRHOEA [None]
  - DIZZINESS [None]
  - ELECTROLYTE IMBALANCE [None]
  - GENERAL PHYSICAL HEALTH DETERIORATION [None]
  - HYPOTENSION [None]
  - HYPOTHYROIDISM [None]
